FAERS Safety Report 11431542 (Version 1)
Quarter: 2015Q3

REPORT INFORMATION
  Report Type: Spontaneous
  Country: FR (occurrence: FR)
  Receive Date: 20150828
  Receipt Date: 20150828
  Transmission Date: 20151125
  Serious: Yes (Hospitalization)
  Sender: FDA-Public Use
  Company Number: FR-PFIZER INC-2015276816

PATIENT
  Age: 36 Year
  Sex: Male

DRUGS (7)
  1. DOLIPRANE [Suspect]
     Active Substance: ACETAMINOPHEN
     Indication: PAIN
     Dosage: 1000 MG, 4X/DAY
     Route: 048
     Dates: start: 20150716, end: 20150722
  2. PERFALGAN [Concomitant]
     Active Substance: ACETAMINOPHEN
     Route: 042
  3. FRAGMINE [Suspect]
     Active Substance: DALTEPARIN SODIUM
     Indication: THROMBOSIS PROPHYLAXIS
     Dosage: 5000 IU, 2X/DAY
     Route: 058
     Dates: start: 20150716, end: 20150720
  4. ACUPAN [Concomitant]
     Active Substance: NEFOPAM HYDROCHLORIDE
     Route: 042
  5. AMOXICILLIN SODIUM W/CLAVULANIC ACID [Concomitant]
     Indication: PROPHYLAXIS
  6. TRAMADOL. [Concomitant]
     Active Substance: TRAMADOL
     Route: 042
  7. ZAMUDOL [Suspect]
     Active Substance: TRAMADOL HYDROCHLORIDE
     Indication: PAIN
     Dosage: 1 DF, 1X/DAY
     Route: 048
     Dates: start: 20150716, end: 20150720

REACTIONS (3)
  - Rash erythematous [Recovering/Resolving]
  - Generalised erythema [Recovering/Resolving]
  - Toxic skin eruption [Recovering/Resolving]

NARRATIVE: CASE EVENT DATE: 20150717
